FAERS Safety Report 24669317 (Version 1)
Quarter: 2024Q4

REPORT INFORMATION
  Report Type: Spontaneous
  Country: US (occurrence: US)
  Receive Date: 20241127
  Receipt Date: 20241127
  Transmission Date: 20250114
  Serious: Yes (Other)
  Sender: AMGEN
  Company Number: US-AMGEN-USASP2024232630

PATIENT
  Age: 79 Year
  Sex: Male

DRUGS (2)
  1. TAVNEOS [Suspect]
     Active Substance: AVACOPAN
     Indication: Chronic kidney disease
     Dosage: 3 DOSAGE FORM, BID (DAILY 3 IN AM AND 3 AT NIGHT) (6 CAPSULES DAILY )
     Route: 048
     Dates: start: 202406
  2. TAVNEOS [Suspect]
     Active Substance: AVACOPAN
     Indication: Off label use

REACTIONS (4)
  - Colon cancer [Unknown]
  - Blood creatinine decreased [Unknown]
  - Unevaluable event [Unknown]
  - Off label use [Unknown]

NARRATIVE: CASE EVENT DATE: 20240101
